FAERS Safety Report 23598148 (Version 1)
Quarter: 2024Q1

REPORT INFORMATION
  Report Type: Spontaneous
  Country: FR (occurrence: FR)
  Receive Date: 20240305
  Receipt Date: 20240305
  Transmission Date: 20240410
  Serious: Yes (Disabling)
  Sender: FDA-Public Use
  Company Number: FR-JNJFOC-20240281496

PATIENT
  Sex: Male

DRUGS (5)
  1. HALOPERIDOL [Suspect]
     Active Substance: HALOPERIDOL
     Indication: Personality disorder
     Dosage: 30 GTTES 2X/J
     Route: 048
     Dates: start: 2016, end: 2024
  2. ZYPREXA [Suspect]
     Active Substance: OLANZAPINE
     Indication: Personality disorder
     Dosage: ZYPREXA 7,5 MG, COMPRIME ENROBE, DOSE: 1 CP 2X/J
     Route: 048
     Dates: start: 2016
  3. LORAZEPAM [Suspect]
     Active Substance: LORAZEPAM
     Indication: Parkinsonism
     Dosage: TEMESTA 2,5 MG, COMPRIME SECABLE
     Route: 048
     Dates: start: 2016
  4. TRIHEXYPHENIDYL HYDROCHLORIDE [Suspect]
     Active Substance: TRIHEXYPHENIDYL HYDROCHLORIDE
     Indication: Parkinsonism
     Dosage: PARKINANE L P 5 MG, GELULE A LIBERATION PROLONGEE
     Route: 048
     Dates: start: 2016
  5. ABILIFY [Suspect]
     Active Substance: ARIPIPRAZOLE
     Indication: Personality disorder
     Dosage: ABILIFY 10 MG, COMPRIME
     Route: 048
     Dates: start: 2016

REACTIONS (1)
  - Dilated cardiomyopathy [Unknown]

NARRATIVE: CASE EVENT DATE: 20210303
